FAERS Safety Report 8851765 (Version 1)
Quarter: 2012Q4

REPORT INFORMATION
  Report Type: 
  Country: US (occurrence: US)
  Receive Date: 20121022
  Receipt Date: 20121022
  Transmission Date: 20130627
  Serious: No
  Sender: FDA-Public Use
  Company Number: US-PFIZER INC-2012260179

PATIENT
  Age: 78 Year
  Sex: Female
  Weight: 90.7 kg

DRUGS (7)
  1. PROCARDIA [Suspect]
     Indication: HYPERTENSION
     Dosage: 60 mg, daily
     Route: 048
  2. PROCARDIA [Suspect]
     Dosage: 90 mg, daily
     Route: 048
     Dates: end: 20121014
  3. PROCARDIA [Suspect]
     Dosage: 60 mg, daily
     Route: 048
     Dates: start: 20121015, end: 20121016
  4. PROCARDIA [Suspect]
     Dosage: 90 mg, daily
     Route: 048
     Dates: start: 20121016
  5. ZOLOFT [Concomitant]
     Dosage: UNK
  6. LIPITOR [Concomitant]
     Dosage: UNK
  7. LOPID [Concomitant]
     Dosage: UNK

REACTIONS (3)
  - Weight fluctuation [Unknown]
  - Body height decreased [Unknown]
  - Incorrect dose administered [Unknown]
